FAERS Safety Report 9817844 (Version 2)
Quarter: 2014Q4

REPORT INFORMATION
  Report Type: Spontaneous
  Country: US (occurrence: None)
  Receive Date: 20131223
  Receipt Date: 20141127
  Transmission Date: 20150529
  Serious: No
  Sender: FDA-Public Use
  Company Number: 218608

PATIENT
  Age: 75 Year
  Sex: Male

DRUGS (1)
  1. PICATO [Suspect]
     Active Substance: INGENOL MEBUTATE
     Indication: ACTINIC KERATOSIS
     Route: 061
     Dates: start: 20120807, end: 20120809

REACTIONS (6)
  - Pruritus [None]
  - Application site erythema [None]
  - Erythema [None]
  - Off label use [None]
  - Application site pruritus [None]
  - Drug administration error [None]

NARRATIVE: CASE EVENT DATE: 20120807
